FAERS Safety Report 19526189 (Version 2)
Quarter: 2021Q3

REPORT INFORMATION
  Report Type: Spontaneous
  Country: US (occurrence: US)
  Receive Date: 20210713
  Receipt Date: 20210715
  Transmission Date: 20211014
  Serious: No
  Sender: FDA-Public Use
  Company Number: US-BEH-2021133870

PATIENT
  Age: 35 Year
  Sex: Female

DRUGS (16)
  1. HIZENTRA [Suspect]
     Active Substance: HUMAN IMMUNOGLOBULIN G
     Indication: IMMUNODEFICIENCY COMMON VARIABLE
     Dosage: 8 GRAMS, QW
     Route: 058
     Dates: start: 20160803
  2. CLINDAMYCIN. [Concomitant]
     Active Substance: CLINDAMYCIN
  3. FLUOXETINE [Concomitant]
     Active Substance: FLUOXETINE HYDROCHLORIDE
  4. PROPRANOLOL [Concomitant]
     Active Substance: PROPRANOLOL HYDROCHLORIDE
  5. COSENTYX [Concomitant]
     Active Substance: SECUKINUMAB
  6. LORAZEPAM. [Concomitant]
     Active Substance: LORAZEPAM
  7. KETOROLAC [Concomitant]
     Active Substance: KETOROLAC TROMETHAMINE
  8. VITAMIN D NOS [Concomitant]
     Active Substance: VITAMIN D NOS
  9. BUTORPHANOL [Concomitant]
     Active Substance: BUTORPHANOL
  10. TIZANIDINE. [Concomitant]
     Active Substance: TIZANIDINE
  11. OXYCODONE WITH APAP [Concomitant]
     Active Substance: ACETAMINOPHEN\OXYCODONE HYDROCHLORIDE
  12. ESZOPICLONE. [Concomitant]
     Active Substance: ESZOPICLONE
  13. BUTALBITAL APAP CAFFEINE [Concomitant]
     Active Substance: ACETAMINOPHEN\BUTALBITAL\CAFFEINE
  14. NORETHIN [Concomitant]
  15. CLONAZEPAM. [Concomitant]
     Active Substance: CLONAZEPAM
  16. GABAPENTIN. [Concomitant]
     Active Substance: GABAPENTIN

REACTIONS (1)
  - Malaise [Not Recovered/Not Resolved]

NARRATIVE: CASE EVENT DATE: 20210709
